FAERS Safety Report 16797023 (Version 2)
Quarter: 2019Q3

REPORT INFORMATION
  Report Type: Spontaneous
  Country: US (occurrence: US)
  Receive Date: 20190911
  Receipt Date: 20190919
  Transmission Date: 20191005
  Serious: Yes (Hospitalization, Other)
  Sender: FDA-Public Use
  Company Number: US-MTPC-MTDA2019-0070500

PATIENT

DRUGS (1)
  1. RADICAVA [Suspect]
     Active Substance: EDARAVONE
     Indication: AMYOTROPHIC LATERAL SCLEROSIS
     Dosage: AS PRESCRIBED
     Route: 065
     Dates: start: 20190812

REACTIONS (3)
  - Therapeutic response unexpected [Unknown]
  - Hip fracture [Unknown]
  - Fall [Unknown]
